FAERS Safety Report 8061212-1 (Version None)
Quarter: 2012Q1

REPORT INFORMATION
  Report Type: 
  Country: None (occurrence: None)
  Receive Date: 20120120
  Receipt Date: 20110707
  Transmission Date: 20120608
  Serious: No
  Sender: FDA-Public Use
  Company Number: US-ALLERGAN-1109188US

PATIENT
  Age: 61 Year
  Sex: Female

DRUGS (5)
  1. RESTASIS [Suspect]
     Dosage: 1 GTT, UNK
     Dates: end: 20110601
  2. TRAVATAN Z [Concomitant]
     Indication: GLAUCOMA
     Dosage: 1 GTT, QHS
     Route: 047
  3. THERA TEARS [Concomitant]
     Dosage: UNK
     Route: 047
  4. REFRESH GEL [Concomitant]
     Indication: DRY EYE
     Route: 047
  5. RESTASIS [Suspect]
     Indication: DRY EYE
     Dosage: 1 GTT, BID
     Route: 061
     Dates: start: 20110620, end: 20110706

REACTIONS (1)
  - DRY EYE [None]
